FAERS Safety Report 6685494-3 (Version None)
Quarter: 2010Q2

REPORT INFORMATION
  Report Type: 
  Country: None (occurrence: None)
  Receive Date: 20100419
  Receipt Date: 20100408
  Transmission Date: 20101027
  Serious: No
  Sender: FDA-Public Use
  Company Number: US-BIOGENIDEC-2009BI021436

PATIENT
  Age: 53 Year
  Sex: Male

DRUGS (1)
  1. TYSABRI [Suspect]
     Indication: MULTIPLE SCLEROSIS
     Route: 042
     Dates: start: 20090625

REACTIONS (8)
  - BURSITIS [None]
  - CONTUSION [None]
  - FATIGUE [None]
  - MULTIPLE SCLEROSIS RELAPSE [None]
  - NERVE ROOT COMPRESSION [None]
  - SPEECH DISORDER [None]
  - VISION BLURRED [None]
  - VISUAL IMPAIRMENT [None]
